FAERS Safety Report 11349553 (Version 1)
Quarter: 2015Q3

REPORT INFORMATION
  Report Type: Spontaneous
  Country: US (occurrence: None)
  Receive Date: 20150805
  Receipt Date: 20150805
  Transmission Date: 20151125
  Serious: Yes (Other)
  Sender: FDA-Public Use
  Company Number: 2015HINSPO0630

PATIENT
  Age: 50 Year
  Sex: Female

DRUGS (4)
  1. BUPROPION (BUPROPION) [Concomitant]
     Active Substance: BUPROPION
  2. VENLAFAXINE ER (VENLAFAXINE ER) [Concomitant]
  3. ZOLPIDEM (ZOLPIDEM) [Concomitant]
     Active Substance: ZOLPIDEM TARTRATE
  4. ARIPIPRAZOLE (ARIPIPRAZOLE) TABLET, 2MG [Suspect]
     Active Substance: ARIPIPRAZOLE
     Indication: DEPRESSION
     Route: 048
     Dates: start: 20150623, end: 20150716

REACTIONS (3)
  - Sensation of foreign body [None]
  - Laryngitis [None]
  - Choking sensation [None]

NARRATIVE: CASE EVENT DATE: 20150623
